FAERS Safety Report 21838521 (Version 1)
Quarter: 2023Q1

REPORT INFORMATION
  Report Type: Spontaneous
  Country: US (occurrence: None)
  Receive Date: 20230108
  Receipt Date: 20230108
  Transmission Date: 20230418
  Serious: Yes (Disabling)
  Sender: FDA-Public Use
  Company Number: None

PATIENT
  Age: 40 Year
  Sex: Female
  Weight: 78.75 kg

DRUGS (2)
  1. VTAMA [Suspect]
     Active Substance: TAPINAROF
     Indication: Psoriasis
     Dosage: OTHER QUANTITY : 1 10 MG;?FREQUENCY : DAILY;?
     Route: 061
     Dates: start: 20221126, end: 20230108
  2. daily multi vitamins [Concomitant]

REACTIONS (3)
  - Pruritus [None]
  - Scratch [None]
  - Rash [None]

NARRATIVE: CASE EVENT DATE: 20230108
